FAERS Safety Report 9182225 (Version 1)
Quarter: 2013Q1

REPORT INFORMATION
  Report Type: Spontaneous
  Country: US (occurrence: None)
  Receive Date: 20120626
  Receipt Date: 20120626
  Transmission Date: 20140127
  Serious: Yes (Other)
  Sender: FDA-Public Use
  Company Number: PHEH2011US009276

PATIENT
  Age: 70 Year
  Sex: Female

DRUGS (6)
  1. DIOVAN HCT (VALSARTAN, HYDROCHLOROTHIAZIDE) UNKNOWN [Suspect]
     Dosage: 1 DF (160 VALSARTAN /12,5 MG HYDROCHLOROTHIAZIDE)
  2. BENICAR [Suspect]
  3. LIPITOR (ATORVASTATIN CALCIUM ) [Concomitant]
  4. LASIX (FUROSEMIDE) [Concomitant]
  5. ESTRADIOL (ESTRADIOL) (GEL) [Concomitant]
  6. POTASSIUM (POTASSIUM) [Concomitant]

REACTIONS (4)
  - Blood pressure fluctuation [None]
  - Visual impairment [None]
  - Abdominal discomfort [None]
  - Diarrhoea [None]
